FAERS Safety Report 15018022 (Version 1)
Quarter: 2018Q2

REPORT INFORMATION
  Report Type: Spontaneous
  Country: BR (occurrence: BR)
  Receive Date: 20180615
  Receipt Date: 20180615
  Transmission Date: 20180711
  Serious: Yes (Hospitalization, Other)
  Sender: FDA-Public Use
  Company Number: BR-B.I. PHARMACEUTICALS,INC./RIDGEFIELD-2018-BI-030428

PATIENT
  Age: 45 Year
  Sex: Male
  Weight: 82 kg

DRUGS (9)
  1. VALSARTANA [Concomitant]
     Active Substance: VALSARTAN
     Indication: HYPERTENSION
     Dosage: START DATE: APPROXIMATELY 3 YEARS AGO
     Route: 048
  2. SINVASTATINA [Concomitant]
     Active Substance: SIMVASTATIN
     Indication: BLOOD CHOLESTEROL ABNORMAL
     Route: 048
     Dates: start: 200704
  3. TARTARATO DE METOPROLOL [Concomitant]
     Indication: DRUG THERAPY
     Route: 048
     Dates: start: 200901
  4. SELOKEN [Concomitant]
     Active Substance: METOPROLOL
     Indication: DRUG THERAPY
     Route: 048
     Dates: start: 200704
  5. PRESSAT [Concomitant]
     Active Substance: AMLODIPINE BESYLATE
     Indication: HYPERTENSION
     Route: 048
     Dates: start: 200704
  6. INDAPAMIDA [Concomitant]
     Active Substance: INDAPAMIDE
     Indication: HYPERTENSION
     Dosage: START DATE: APPROXIMATELY 3 YEARS AGO
     Route: 048
  7. ATENSINA [Suspect]
     Active Substance: CLONIDINE
     Indication: HYPERTENSION
     Dosage: THERAPY END DATE - APPROXIMATELY 1 MONTH AGO
     Route: 048
     Dates: start: 200704
  8. AAS [Concomitant]
     Active Substance: ASPIRIN
     Indication: BLOOD VISCOSITY ABNORMAL
     Dosage: THERAPY END DATE: APPROXIMATELY 5 YEARS AGO
     Dates: start: 2007
  9. SOMALGIN CARDIO [Concomitant]
     Active Substance: ASPIRIN\DIHYDROXYALUMINUM AMINOACETATE ANHYDROUS\MAGNESIUM CARBONATE
     Indication: BLOOD VISCOSITY ABNORMAL
     Dosage: START DATE: APPROXIMATELY 5 YEARS AGO
     Route: 048

REACTIONS (8)
  - Malaise [Unknown]
  - Cerebrovascular accident [Not Recovered/Not Resolved]
  - Hemiparesis [Not Recovered/Not Resolved]
  - Lip disorder [Not Recovered/Not Resolved]
  - Gait disturbance [Not Recovered/Not Resolved]
  - Umbilical hernia [Recovered/Resolved]
  - Pain [Recovered/Resolved]
  - Arterial occlusive disease [Recovered/Resolved]

NARRATIVE: CASE EVENT DATE: 20090107
